FAERS Safety Report 4927141-4 (Version None)
Quarter: 2006Q1

REPORT INFORMATION
  Report Type: 
  Country: None (occurrence: None)
  Receive Date: 20060213
  Receipt Date: 20060131
  Transmission Date: 20060701
  Serious: Yes (Hospitalization)
  Sender: FDA-Public Use
  Company Number: 200610026BBE

PATIENT
  Age: 23 Year
  Sex: Male
  Weight: 93 kg

DRUGS (2)
  1. KOGENATE FS [Suspect]
     Indication: FACTOR VIII DEFICIENCY
     Dosage: 3147 U, TOTAL DAILY, INTRAVENOUS
     Route: 042
     Dates: start: 20060122
  2. PENACILLIN [Concomitant]

REACTIONS (8)
  - ERYTHEMA [None]
  - GINGIVITIS [None]
  - OCULAR ICTERUS [None]
  - PALMAR ERYTHEMA [None]
  - PLANTAR ERYTHEMA [None]
  - PRURITUS GENERALISED [None]
  - SKIN ULCER [None]
  - VOMITING [None]
